FAERS Safety Report 25764698 (Version 1)
Quarter: 2025Q3

REPORT INFORMATION
  Report Type: Spontaneous
  Country: IN (occurrence: IN)
  Receive Date: 20250905
  Receipt Date: 20250905
  Transmission Date: 20251021
  Serious: Yes (Death, Other)
  Sender: CIPLA
  Company Number: IN-CIPLA LTD.-2025IN08541

PATIENT

DRUGS (2)
  1. CELECOXIB [Suspect]
     Active Substance: CELECOXIB
     Indication: Product used for unknown indication
     Route: 048
     Dates: start: 2025, end: 2025
  2. CELECOXIB [Suspect]
     Active Substance: CELECOXIB
     Route: 048
     Dates: start: 2025, end: 2025

REACTIONS (5)
  - Death [Fatal]
  - Swelling face [Unknown]
  - Lip swelling [Unknown]
  - Periorbital swelling [Unknown]
  - Product substitution issue [Unknown]

NARRATIVE: CASE EVENT DATE: 20250101
